FAERS Safety Report 4305129-4 (Version None)
Quarter: 2004Q1

REPORT INFORMATION
  Report Type: 
  Country: None (occurrence: None)
  Receive Date: 20040225
  Receipt Date: 20040225
  Transmission Date: 20041129
  Serious: Yes (Death)
  Sender: FDA-Public Use
  Company Number: None

PATIENT
  Age: 66 Year
  Sex: Male
  Weight: 66.2252 kg

DRUGS (2)
  1. CIPLATIN 100 MG/M2 [Suspect]
     Indication: OESOPHAGEAL CARCINOMA
     Dates: start: 20031124
  2. FLOXURIDINE [Suspect]
     Dates: start: 20040209

REACTIONS (3)
  - CARDIAC ARREST [None]
  - DEHYDRATION [None]
  - DIARRHOEA [None]
